FAERS Safety Report 21418316 (Version 2)
Quarter: 2023Q1

REPORT INFORMATION
  Report Type: Spontaneous
  Country: US (occurrence: None)
  Receive Date: 20221006
  Receipt Date: 20230214
  Transmission Date: 20230418
  Serious: Yes (Other)
  Sender: FDA-Public Use
  Company Number: 2022A334628

PATIENT
  Age: 20614 Day
  Sex: Female
  Weight: 205.5 kg

DRUGS (64)
  1. PRILOSEC [Suspect]
     Active Substance: OMEPRAZOLE MAGNESIUM
     Indication: Gastrooesophageal reflux disease
     Dosage: GENERIC
     Route: 065
     Dates: start: 201404, end: 201410
  2. PRILOSEC [Suspect]
     Active Substance: OMEPRAZOLE MAGNESIUM
     Indication: Gastrooesophageal reflux disease
     Dosage: GENERIC
     Route: 065
     Dates: start: 201412, end: 201503
  3. PRILOSEC [Suspect]
     Active Substance: OMEPRAZOLE MAGNESIUM
     Indication: Gastrooesophageal reflux disease
     Dosage: GENERIC
     Route: 065
     Dates: start: 201504, end: 201507
  4. PRILOSEC [Suspect]
     Active Substance: OMEPRAZOLE MAGNESIUM
     Indication: Gastrooesophageal reflux disease
     Dosage: GENERIC
     Route: 065
     Dates: start: 201611
  5. PRILOSEC [Suspect]
     Active Substance: OMEPRAZOLE MAGNESIUM
     Indication: Gastrooesophageal reflux disease
     Dosage: GENERIC
     Route: 065
     Dates: start: 20150702
  6. PRILOSEC [Suspect]
     Active Substance: OMEPRAZOLE MAGNESIUM
     Indication: Gastrooesophageal reflux disease
     Dosage: 20.0MG UNKNOWN
     Route: 048
     Dates: start: 20161103
  7. PREVACID [Suspect]
     Active Substance: LANSOPRAZOLE
     Indication: Gastrooesophageal reflux disease
     Route: 065
     Dates: start: 200003, end: 200007
  8. PREVACID [Suspect]
     Active Substance: LANSOPRAZOLE
     Indication: Gastrooesophageal reflux disease
     Route: 065
     Dates: start: 200008, end: 200106
  9. PREVACID [Suspect]
     Active Substance: LANSOPRAZOLE
     Indication: Gastrooesophageal reflux disease
     Dosage: 15.0MG UNKNOWN
     Route: 065
     Dates: start: 20000325
  10. LISINOPRIL [Concomitant]
     Active Substance: LISINOPRIL
     Indication: Blood pressure measurement
  11. ROPINIROLE [Concomitant]
     Active Substance: ROPINIROLE
     Indication: Restless legs syndrome
  12. GABAPENTIN [Concomitant]
     Active Substance: GABAPENTIN
     Indication: Restless legs syndrome
     Route: 048
     Dates: start: 201404, end: 201410
  13. GABAPENTIN [Concomitant]
     Active Substance: GABAPENTIN
     Indication: Restless legs syndrome
     Route: 048
     Dates: start: 201404, end: 201505
  14. GABAPENTIN [Concomitant]
     Active Substance: GABAPENTIN
     Indication: Restless legs syndrome
     Route: 048
     Dates: start: 201504, end: 201507
  15. GABAPENTIN [Concomitant]
     Active Substance: GABAPENTIN
     Indication: Restless legs syndrome
     Route: 048
     Dates: start: 201611
  16. FUROSEMIDE [Concomitant]
     Active Substance: FUROSEMIDE
     Indication: Diuretic therapy
  17. ASPIRIN [Concomitant]
     Active Substance: ASPIRIN
     Indication: Atrioventricular block
  18. VITAMIN C [Concomitant]
     Active Substance: ASCORBIC ACID
     Indication: Hypovitaminosis
     Route: 048
     Dates: start: 201404, end: 201410
  19. VITAMIN C [Concomitant]
     Active Substance: ASCORBIC ACID
     Indication: Hypovitaminosis
     Route: 048
     Dates: start: 201404, end: 201505
  20. VITAMIN C [Concomitant]
     Active Substance: ASCORBIC ACID
     Indication: Hypovitaminosis
     Route: 048
     Dates: start: 201504, end: 201507
  21. VITAMIN C [Concomitant]
     Active Substance: ASCORBIC ACID
     Indication: Hypovitaminosis
     Route: 048
     Dates: start: 201611
  22. VITAMIN D [Concomitant]
     Active Substance: VITAMIN D NOS
     Indication: Hypovitaminosis
     Route: 048
     Dates: start: 201404, end: 201410
  23. VITAMIN D [Concomitant]
     Active Substance: VITAMIN D NOS
     Indication: Hypovitaminosis
     Route: 048
     Dates: start: 201404, end: 201505
  24. VITAMIN D [Concomitant]
     Active Substance: VITAMIN D NOS
     Indication: Hypovitaminosis
     Route: 048
     Dates: start: 201504, end: 201507
  25. VITAMIN D [Concomitant]
     Active Substance: VITAMIN D NOS
     Indication: Hypovitaminosis
     Route: 048
     Dates: start: 201611
  26. NYSTATIN [Concomitant]
     Active Substance: NYSTATIN
     Indication: Miliaria
  27. FAMOTIDINE [Concomitant]
     Active Substance: FAMOTIDINE
  28. CLONAZEPAM [Concomitant]
     Active Substance: CLONAZEPAM
  29. CYMBALTA [Concomitant]
     Active Substance: DULOXETINE HYDROCHLORIDE
  30. METFORMIN [Concomitant]
     Active Substance: METFORMIN HYDROCHLORIDE
  31. GLIPIZIDE [Concomitant]
     Active Substance: GLIPIZIDE
  32. MELOXICAM [Concomitant]
     Active Substance: MELOXICAM
     Route: 048
     Dates: start: 201404, end: 201410
  33. MELOXICAM [Concomitant]
     Active Substance: MELOXICAM
     Route: 048
     Dates: start: 201404, end: 201505
  34. MELOXICAM [Concomitant]
     Active Substance: MELOXICAM
     Route: 048
     Dates: start: 201504, end: 201507
  35. MELOXICAM [Concomitant]
     Active Substance: MELOXICAM
     Route: 048
     Dates: start: 201611
  36. FLUOXETINE [Concomitant]
     Active Substance: FLUOXETINE HYDROCHLORIDE
  37. PRAVASTATIN [Concomitant]
     Active Substance: PRAVASTATIN
  38. TRAMADOL [Concomitant]
     Active Substance: TRAMADOL
  39. BACLOFEN [Concomitant]
     Active Substance: BACLOFEN
  40. TIZANIDINE [Concomitant]
     Active Substance: TIZANIDINE
  41. MELATONIN [Concomitant]
     Active Substance: MELATONIN
  42. OXYCODONE [Concomitant]
     Active Substance: OXYCODONE
     Dates: start: 20170204
  43. METOPROLOL TARTRATE [Concomitant]
     Active Substance: METOPROLOL TARTRATE
     Dates: start: 20191001
  44. WARFARIN SODIUM [Concomitant]
     Active Substance: WARFARIN SODIUM
     Dates: start: 20191127
  45. AZITHROMYCIN [Concomitant]
     Active Substance: AZITHROMYCIN
     Dates: start: 20200222
  46. BENZONATATE [Concomitant]
     Active Substance: BENZONATATE
     Dates: start: 20200225
  47. NABUMETONE [Concomitant]
     Active Substance: NABUMETONE
  48. RANITIDINE [Concomitant]
     Active Substance: RANITIDINE
  49. ATACAND [Concomitant]
     Active Substance: CANDESARTAN CILEXETIL
  50. EFFEXOR XR [Concomitant]
     Active Substance: VENLAFAXINE HYDROCHLORIDE
  51. AMBIEN [Concomitant]
     Active Substance: ZOLPIDEM TARTRATE
  52. GUAIFENESIN\PHENYLEPHRINE\PHENYLPROPANOLAMINE [Concomitant]
     Active Substance: GUAIFENESIN\PHENYLEPHRINE\PHENYLPROPANOLAMINE
  53. METOCLOPRAMIDE [Concomitant]
     Active Substance: METOCLOPRAMIDE
  54. LEVAQUIN [Concomitant]
     Active Substance: LEVOFLOXACIN
  55. ZYRTEC-D [Concomitant]
     Active Substance: CETIRIZINE HYDROCHLORIDE\PSEUDOEPHEDRINE HYDROCHLORIDE
  56. CLOTRIM [Concomitant]
  57. NORVASC [Concomitant]
     Active Substance: AMLODIPINE BESYLATE
  58. TEQUIN [Concomitant]
     Active Substance: GATIFLOXACIN
  59. AVALIDE [Concomitant]
     Active Substance: HYDROCHLOROTHIAZIDE\IRBESARTAN
  60. CELEBREX [Concomitant]
     Active Substance: CELECOXIB
  61. PROPAFENONE [Concomitant]
     Active Substance: PROPAFENONE
  62. FLONASE [Concomitant]
     Active Substance: FLUTICASONE PROPIONATE
     Dates: start: 20180201
  63. DIFLUCAN [Concomitant]
     Active Substance: FLUCONAZOLE
     Dates: start: 20180201
  64. NEURONTIN [Concomitant]
     Active Substance: GABAPENTIN
     Dates: start: 20180201

REACTIONS (2)
  - Chronic kidney disease [Not Recovered/Not Resolved]
  - Acute kidney injury [Unknown]

NARRATIVE: CASE EVENT DATE: 20151119
